FAERS Safety Report 8131752 (Version 5)
Quarter: 2013Q1

REPORT INFORMATION
  Report Type: Spontaneous
  Country: JP (occurrence: JP)
  Receive Date: 20110912
  Receipt Date: 20130304
  Transmission Date: 20140127
  Serious: Yes (Life-Threatening, Hospitalization, Other)
  Sender: FDA-Public Use
  Company Number: JP-PFIZER INC-2011208744

PATIENT
  Age: 74 Year
  Sex: Female
  Weight: 50 kg

DRUGS (9)
  1. SELARA [Suspect]
     Indication: DIABETES MELLITUS
     Dosage: 50 MG, 1X/DAY
     Route: 048
     Dates: start: 20090831, end: 20101119
  2. SELARA [Suspect]
     Indication: ATRIAL FIBRILLATION
  3. SELARA [Suspect]
     Indication: CARDIAC FAILURE
  4. SELARA [Suspect]
     Indication: HYPERTENSION
  5. DIGOXIN [Suspect]
     Indication: ATRIAL FIBRILLATION
     Dosage: 0.25 MG, 1X/DAY
     Dates: start: 20100801, end: 20101119
  6. DIGOXIN [Suspect]
     Indication: TACHYCARDIA
  7. FUROSEMIDE [Concomitant]
     Indication: DIABETES MELLITUS
     Dosage: 40 MG, 1X/DAY
     Route: 048
     Dates: start: 20051119
  8. FUROSEMIDE [Concomitant]
     Indication: ATRIAL FIBRILLATION
  9. FUROSEMIDE [Concomitant]
     Indication: CARDIAC FAILURE

REACTIONS (3)
  - Ventricular tachycardia [Recovered/Resolved]
  - Hyperkalaemia [Recovered/Resolved]
  - Toxicity to various agents [Recovered/Resolved]
